FAERS Safety Report 20581494 (Version 2)
Quarter: 2022Q2

REPORT INFORMATION
  Report Type: Spontaneous
  Country: US (occurrence: None)
  Receive Date: 20220311
  Receipt Date: 20220422
  Transmission Date: 20220721
  Serious: Yes (Other)
  Sender: FDA-Public Use
  Company Number: US-ROCHE-3040335

PATIENT
  Sex: Male

DRUGS (1)
  1. OCREVUS [Suspect]
     Active Substance: OCRELIZUMAB
     Indication: Product used for unknown indication
     Route: 065

REACTIONS (10)
  - Multiple sclerosis relapse [Unknown]
  - Neuropathy peripheral [Unknown]
  - Stress [Unknown]
  - Product dose omission issue [Unknown]
  - Memory impairment [Unknown]
  - Peripheral swelling [Unknown]
  - Fatigue [Unknown]
  - Feeling abnormal [Unknown]
  - Headache [Unknown]
  - Condition aggravated [Unknown]
